FAERS Safety Report 15842496 (Version 4)
Quarter: 2019Q1

REPORT INFORMATION
  Report Type: Report from Study
  Country: US (occurrence: US)
  Receive Date: 20190118
  Receipt Date: 20190228
  Transmission Date: 20190417
  Serious: Yes (Other)
  Sender: FDA-Public Use
  Company Number: US-BAYER-2018-208980

PATIENT
  Age: 60 Year
  Sex: Male

DRUGS (8)
  1. STIVARGA [Suspect]
     Active Substance: REGORAFENIB
     Indication: COLORECTAL CANCER
     Dosage: 80 MG DAILY
     Route: 048
     Dates: start: 20181107, end: 201811
  2. STIVARGA [Suspect]
     Active Substance: REGORAFENIB
     Indication: COLORECTAL CANCER
     Dosage: DAILY DOSE 120 MG
     Route: 048
     Dates: start: 20190101, end: 2019
  3. STIVARGA [Suspect]
     Active Substance: REGORAFENIB
     Indication: COLORECTAL CANCER
     Dosage: 120 MG, QD
     Route: 048
     Dates: start: 20190218
  4. STIVARGA [Suspect]
     Active Substance: REGORAFENIB
     Indication: COLORECTAL CANCER
     Dosage: 80 MG DAILY
     Route: 048
     Dates: start: 2018, end: 2018
  5. STIVARGA [Suspect]
     Active Substance: REGORAFENIB
     Indication: COLORECTAL CANCER
     Dosage: 120 MG DAILY FOR 21 DAYS AND OFF 7 DAYS
     Route: 048
     Dates: start: 20181209, end: 20181211
  6. STIVARGA [Suspect]
     Active Substance: REGORAFENIB
     Indication: COLORECTAL CANCER
     Dosage: 160 MG DAILY
     Route: 048
     Dates: start: 201811, end: 2018
  7. STIVARGA [Suspect]
     Active Substance: REGORAFENIB
     Indication: COLORECTAL CANCER
     Dosage: 160 MG, QD
     Dates: start: 20181212, end: 20181215
  8. STIVARGA [Suspect]
     Active Substance: REGORAFENIB
     Indication: COLORECTAL CANCER
     Dosage: 120 MG, QD, FOR 1 WEEK
     Dates: start: 20181216, end: 201812

REACTIONS (31)
  - Fatigue [None]
  - Vomiting [None]
  - Off label use [None]
  - Dry skin [None]
  - Pain [None]
  - Dizziness [None]
  - Heart rate increased [Recovering/Resolving]
  - Visual impairment [None]
  - Dysgeusia [None]
  - Nausea [None]
  - Weight decreased [None]
  - Decreased appetite [None]
  - Chromaturia [None]
  - Hypersomnia [None]
  - Oxygen saturation decreased [None]
  - Malaise [None]
  - Abdominal pain [Not Recovered/Not Resolved]
  - Dysphonia [None]
  - Vomiting [None]
  - Dehydration [None]
  - Malaise [None]
  - Vomiting [None]
  - Alopecia [None]
  - Drug ineffective [None]
  - Vomiting [None]
  - Constipation [None]
  - Dyspepsia [None]
  - Diarrhoea [None]
  - Fatigue [None]
  - Diarrhoea [None]
  - Decreased appetite [None]

NARRATIVE: CASE EVENT DATE: 2018
